FAERS Safety Report 21338791 (Version 3)
Quarter: 2022Q4

REPORT INFORMATION
  Report Type: Report from Study
  Country: FR (occurrence: FR)
  Receive Date: 20220915
  Receipt Date: 20221027
  Transmission Date: 20230113
  Serious: Yes (Hospitalization)
  Sender: FDA-Public Use
  Company Number: FR-JNJFOC-20220916393

PATIENT
  Age: 63 Year
  Sex: Male
  Weight: 111.5 kg

DRUGS (3)
  1. DARATUMUMAB [Suspect]
     Active Substance: DARATUMUMAB
     Indication: Chronic lymphocytic leukaemia
     Dosage: MOST RECENT DOSE PRIOR TO SAE 10-AUG-2022
     Route: 042
     Dates: start: 20201014
  2. IBRUTINIB [Suspect]
     Active Substance: IBRUTINIB
     Indication: Chronic lymphocytic leukaemia
     Dosage: MOST RECENT DOSE PRIOR TO SAE 10-AUG-2022
     Route: 048
     Dates: start: 20200917
  3. IBRUTINIB [Suspect]
     Active Substance: IBRUTINIB
     Route: 048
     Dates: start: 20221012

REACTIONS (1)
  - Cellulitis orbital [Recovered/Resolved]

NARRATIVE: CASE EVENT DATE: 20220905
